FAERS Safety Report 16354031 (Version 1)
Quarter: 2019Q2

REPORT INFORMATION
  Report Type: Report from Study
  Country: ZA (occurrence: ZA)
  Receive Date: 20190524
  Receipt Date: 20190524
  Transmission Date: 20190711
  Serious: Yes (Other)
  Sender: FDA-Public Use
  Company Number: ZA-MYLANLABS-2019M1049261

PATIENT
  Age: 32 Year
  Sex: Male

DRUGS (2)
  1. ATROIZA [Suspect]
     Active Substance: EFAVIRENZ\EMTRICITABINE\TENOFOVIR DISOPROXIL FUMARATE
     Indication: PRODUCT USED FOR UNKNOWN INDICATION
     Dosage: UNK UNK, HS (AT BEDTIME)
     Route: 048
  2. ATROIZA [Suspect]
     Active Substance: EFAVIRENZ\EMTRICITABINE\TENOFOVIR DISOPROXIL FUMARATE
     Dosage: 1 UNK, HS (AT BEDTIME)
     Route: 048
     Dates: start: 20190122

REACTIONS (5)
  - Drug ineffective [Unknown]
  - Dizziness [Unknown]
  - Nausea [Unknown]
  - Disturbance in attention [Unknown]
  - Headache [Unknown]

NARRATIVE: CASE EVENT DATE: 2019
